FAERS Safety Report 10905594 (Version 1)
Quarter: 2015Q1

REPORT INFORMATION
  Report Type: Spontaneous
  Country: US (occurrence: US)
  Receive Date: 20150311
  Receipt Date: 20150311
  Transmission Date: 20150721
  Serious: No
  Sender: FDA-Public Use
  Company Number: US-PFIZER INC-2015082921

PATIENT
  Age: 29 Year
  Sex: Female
  Weight: 79 kg

DRUGS (5)
  1. XALKORI [Suspect]
     Active Substance: CRIZOTINIB
     Indication: CHONDROSARCOMA
     Dosage: 200 MG, 2X/DAY
     Route: 048
     Dates: start: 2014
  2. COENZYME Q10 [Concomitant]
     Active Substance: UBIDECARENONE
     Dosage: 100 MG, 2X/DAY
     Route: 048
  3. ACETYL L CARNITIN [Concomitant]
     Dosage: 500 MG, 1X/DAY
     Route: 048
  4. CURCUMIN PHYTOSOME SR [Concomitant]
     Dosage: 500 MG, 2 CAPSULES ONLY TAKES 3 A DAY
     Route: 048
  5. VITAMIN D [Concomitant]
     Active Substance: CHOLECALCIFEROL
     Dosage: 5000 IU, DAILY
     Route: 048

REACTIONS (3)
  - Chondrosarcoma [Not Recovered/Not Resolved]
  - Off label use [Unknown]
  - Disease progression [Not Recovered/Not Resolved]

NARRATIVE: CASE EVENT DATE: 20150304
